FAERS Safety Report 16235871 (Version 1)
Quarter: 2019Q2

REPORT INFORMATION
  Report Type: Spontaneous
  Country: BE (occurrence: BE)
  Receive Date: 20190424
  Receipt Date: 20190424
  Transmission Date: 20190711
  Serious: Yes (Other)
  Sender: FDA-Public Use
  Company Number: BE-BIOGEN-2019BI00726461

PATIENT
  Age: 38 Year
  Sex: Female

DRUGS (4)
  1. GILENYA [Suspect]
     Active Substance: FINGOLIMOD HYDROCHLORIDE
     Route: 065
     Dates: start: 20141216, end: 20150105
  2. PLEGRIDY [Suspect]
     Active Substance: PEGINTERFERON BETA-1A
     Indication: PRODUCT USED FOR UNKNOWN INDICATION
     Dosage: UNKNOWN
     Route: 065
  3. GILENYA [Suspect]
     Active Substance: FINGOLIMOD HYDROCHLORIDE
     Indication: MULTIPLE SCLEROSIS
     Route: 048
     Dates: start: 20140227, end: 20141208
  4. GILENYA [Suspect]
     Active Substance: FINGOLIMOD HYDROCHLORIDE
     Route: 065
     Dates: start: 20150106, end: 20150209

REACTIONS (12)
  - Influenza [Unknown]
  - Dry eye [Recovered/Resolved]
  - Blood bilirubin increased [Unknown]
  - Spinal osteoarthritis [Unknown]
  - Medial tibial stress syndrome [Unknown]
  - Anaemia [Unknown]
  - Nasopharyngitis [Unknown]
  - Fatigue [Unknown]
  - Vitamin B12 deficiency [Unknown]
  - Conjunctivitis bacterial [Recovered/Resolved]
  - Headache [Unknown]
  - Lymphopenia [Recovered/Resolved]

NARRATIVE: CASE EVENT DATE: 20140307
